FAERS Safety Report 10489327 (Version 1)
Quarter: 2014Q4

REPORT INFORMATION
  Report Type: Spontaneous
  Country: US (occurrence: None)
  Receive Date: 20141001
  Receipt Date: 20141001
  Transmission Date: 20150528
  Serious: No
  Sender: FDA-Public Use
  Company Number: None

PATIENT
  Age: 65 Year
  Sex: Male

DRUGS (1)
  1. CAPECITABINE. [Suspect]
     Active Substance: CAPECITABINE
     Indication: OESOPHAGEAL CARCINOMA
     Route: 048
     Dates: start: 20140909

REACTIONS (6)
  - Skin fissures [None]
  - Genital disorder male [None]
  - Dry skin [None]
  - Stomatitis [None]
  - Musculoskeletal disorder [None]
  - Diarrhoea [None]
